FAERS Safety Report 4864163-6 (Version None)
Quarter: 2005Q4

REPORT INFORMATION
  Report Type: 
  Country: None (occurrence: None)
  Receive Date: 20051222
  Receipt Date: 20051221
  Transmission Date: 20060501
  Serious: Yes (Hospitalization)
  Sender: FDA-Public Use
  Company Number: FI-GLAXOSMITHKLINE-B0404560A

PATIENT
  Age: 73 Year
  Sex: Male

DRUGS (4)
  1. LEUKERAN [Suspect]
     Indication: CHRONIC LYMPHOCYTIC LEUKAEMIA
     Dosage: 4MG PER DAY
     Route: 048
     Dates: start: 20050916, end: 20051101
  2. SPIRIVA [Concomitant]
  3. SERETIDE [Concomitant]
  4. BUVENTOL [Concomitant]

REACTIONS (2)
  - ANAEMIA [None]
  - APLASIA PURE RED CELL [None]
